FAERS Safety Report 19366428 (Version 4)
Quarter: 2021Q3

REPORT INFORMATION
  Report Type: Spontaneous
  Country: JP (occurrence: JP)
  Receive Date: 20210602
  Receipt Date: 20210713
  Transmission Date: 20211014
  Serious: Yes (Other)
  Sender: FDA-Public Use
  Company Number: JP-PFIZER INC-2021613849

PATIENT
  Age: 45 Year
  Sex: Male

DRUGS (3)
  1. BIOFERMIN [LACTOMIN] [Concomitant]
     Active Substance: DIETARY SUPPLEMENT\PROBIOTICS
     Dosage: UNK UNK, UNKNOWN FREQ. (PER ORAL NOS)
     Route: 048
     Dates: start: 202105
  2. CELECOX [Suspect]
     Active Substance: CELECOXIB
     Indication: INJURY
     Dosage: 200 MG, DAILY
     Route: 048
     Dates: start: 20210109
  3. CHAMPIX [Concomitant]
     Active Substance: VARENICLINE TARTRATE
     Dosage: UNK UNK, UNKNOWN FREQ. (PER ORAL NOS)
     Route: 048
     Dates: start: 202101

REACTIONS (1)
  - Acute haemorrhagic ulcerative colitis [Recovering/Resolving]

NARRATIVE: CASE EVENT DATE: 202105
